FAERS Safety Report 9490932 (Version 1)
Quarter: 2013Q3

REPORT INFORMATION
  Report Type: Spontaneous
  Country: KR (occurrence: KR)
  Receive Date: 20130830
  Receipt Date: 20130830
  Transmission Date: 20140515
  Serious: Yes (Other)
  Sender: FDA-Public Use
  Company Number: KR-009507513-1308KOR010570

PATIENT
  Sex: Male

DRUGS (2)
  1. SIMVASTATIN [Suspect]
     Indication: CAROTID ARTERY STENOSIS
     Dosage: UNK
     Route: 048
     Dates: start: 2006
  2. PLAVIX [Concomitant]
     Indication: CAROTID ARTERY STENOSIS
     Dosage: UNK
     Dates: start: 2006

REACTIONS (3)
  - Hypoacusis [Unknown]
  - Epistaxis [Unknown]
  - Tinnitus [Unknown]
